FAERS Safety Report 5849463-5 (Version None)
Quarter: 2008Q3

REPORT INFORMATION
  Report Type: 
  Country: None (occurrence: None)
  Receive Date: 20080815
  Receipt Date: 20080805
  Transmission Date: 20090109
  Serious: Yes (Hospitalization)
  Sender: FDA-Public Use
  Company Number: 2008AP001931

PATIENT
  Age: 75 Year
  Sex: Female

DRUGS (15)
  1. ALENDRONATE SODIUM [Suspect]
     Indication: OSTEOPOROSIS PROPHYLAXIS
     Dosage: 70 MG; PO; QW PO
     Route: 048
     Dates: start: 20080613, end: 20080709
  2. ASPIRIN [Concomitant]
  3. CALCIUM CARBONATE         (CALCIUM CARBONATE) [Concomitant]
  4. COLECALCIFEROL           (COLECALCIFEROL) [Concomitant]
  5. CARBOCISTEINE (CARBOSCISTEINE) [Concomitant]
  6. DILTIAZEM [Concomitant]
  7. FUROSEMIDE (FUROSEMIDE) [Concomitant]
  8. IPRATROPIUM BROMIDE [Concomitant]
  9. AMINOPHYLLIN [Concomitant]
  10. AMINOPHYLLINE HYDRATE (AMINOPHYLLINE HYDRATE) [Concomitant]
  11. PROCHLORPERAZINE MALEATE [Concomitant]
  12. SALBUTAMOL (SALBUTAMOL) [Concomitant]
  13. FLUTICASONE PROPIONATE [Concomitant]
  14. SALMETEROL XINATOATE (SALMETEROL XINAFOATE) [Concomitant]
  15. SIMVASTATIN [Concomitant]

REACTIONS (4)
  - ACUTE CORONARY SYNDROME [None]
  - HYPOCALCAEMIA [None]
  - NAUSEA [None]
  - VOMITING [None]
